FAERS Safety Report 4655727-3 (Version None)
Quarter: 2005Q2

REPORT INFORMATION
  Report Type: 
  Country: None (occurrence: None)
  Receive Date: 20050505
  Receipt Date: 20050414
  Transmission Date: 20051028
  Serious: No
  Sender: FDA-Public Use
  Company Number: DE_041014485

PATIENT
  Age: 30 Year
  Sex: Female
  Weight: 98 kg

DRUGS (4)
  1. OLANZAPINE [Suspect]
     Indication: SCHIZOPHRENIA
     Dosage: 5 MG DAY
     Dates: start: 20040801
  2. SOLIAN (AMISULPRIDE) [Concomitant]
  3. EDRONAX (REBOXETINE) [Concomitant]
  4. ST JOHN'S WORT [Concomitant]

REACTIONS (4)
  - CAESAREAN SECTION [None]
  - DRUG EXPOSURE DURING PREGNANCY [None]
  - PREMATURE LABOUR [None]
  - UTERINE HAEMATOMA [None]
